FAERS Safety Report 6149221-0 (Version None)
Quarter: 2009Q2

REPORT INFORMATION
  Report Type: 
  Country: None (occurrence: None)
  Receive Date: 20090409
  Receipt Date: 20090401
  Transmission Date: 20091009
  Serious: Yes (Hospitalization, Other)
  Sender: FDA-Public Use
  Company Number: US-AMGEN-QUU339310

PATIENT
  Sex: Female

DRUGS (1)
  1. ENBREL [Suspect]
     Indication: PSORIASIS
     Route: 058
     Dates: start: 20040628

REACTIONS (12)
  - ARTHROPOD BITE [None]
  - DRUG INEFFECTIVE [None]
  - EYE HAEMORRHAGE [None]
  - GLAUCOMA [None]
  - HIATUS HERNIA [None]
  - HYPERKERATOSIS [None]
  - INJECTION SITE IRRITATION [None]
  - MILIA [None]
  - OCULAR VASCULAR DISORDER [None]
  - PSORIASIS [None]
  - RASH PAPULAR [None]
  - SEBORRHOEIC KERATOSIS [None]
